FAERS Safety Report 8416671 (Version 7)
Quarter: 2013Q3

REPORT INFORMATION
  Report Type: Report from Study
  Country: US (occurrence: US)
  Receive Date: 20120220
  Receipt Date: 20130717
  Transmission Date: 20140515
  Serious: Yes (Hospitalization, Other)
  Sender: FDA-Public Use
  Company Number: US-ELI_LILLY_AND_COMPANY-US201202002313

PATIENT
  Age: 58 Year
  Sex: Female

DRUGS (41)
  1. TERIPARATIDE [Suspect]
     Indication: OSTEOPOROSIS
     Dosage: 20 UG, QD
  2. TERIPARATIDE [Suspect]
     Dosage: 20 UG, QD
     Route: 058
  3. TERIPARATIDE [Suspect]
     Dosage: 20 UG, QD
     Route: 058
  4. FOSCARNET [Suspect]
     Indication: CYTOMEGALOVIRUS INFECTION
  5. PREDNISONE [Concomitant]
  6. HEPARIN [Concomitant]
     Indication: CATHETERISATION CARDIAC
  7. LEVOTHYROXINE [Concomitant]
  8. SINGULAIR [Concomitant]
  9. THEO-24 [Concomitant]
  10. ADVAIR [Concomitant]
  11. PULMICORT [Concomitant]
  12. DUONEB [Concomitant]
  13. XOPENEX HFA [Concomitant]
  14. PROTONIX [Concomitant]
  15. CLONAZEPAM [Concomitant]
  16. JANUVIA [Concomitant]
  17. CLARITIN [Concomitant]
  18. MUCINEX [Concomitant]
  19. VENTOLIN HFA [Concomitant]
  20. PATANOL [Concomitant]
  21. VITAMIN D [Concomitant]
     Dosage: UNK
  22. MVI [Concomitant]
  23. TACROLIMUS [Concomitant]
  24. LABETALOL [Concomitant]
  25. PROCARDIA                          /00340701/ [Concomitant]
  26. MARIBAVIR [Concomitant]
     Dosage: UNK
     Dates: start: 20121212
  27. MEPRON [Concomitant]
  28. ALBUTEROL [Concomitant]
  29. PRAVACOL [Concomitant]
  30. ZOFRAN [Concomitant]
  31. SYNTHROID [Concomitant]
  32. NOVOLOG [Concomitant]
     Dosage: UNK, PRN
  33. ARANESP [Concomitant]
  34. NORMAL SALINE [Concomitant]
  35. VISTARIL [Concomitant]
  36. OXYCODONE [Concomitant]
  37. CITRACAL + D [Concomitant]
  38. MAG-OX [Concomitant]
  39. NEPHRO-VITE [Concomitant]
  40. PROMETHAZINE [Concomitant]
  41. DAPSONE [Concomitant]

REACTIONS (18)
  - Emphysema [Recovering/Resolving]
  - Cytomegalovirus infection [Recovering/Resolving]
  - Cytomegalovirus test positive [Unknown]
  - Cytomegalovirus test positive [Unknown]
  - Cytomegalovirus test positive [Unknown]
  - Vomiting [Unknown]
  - Diarrhoea [Unknown]
  - Pneumonia [Unknown]
  - Aphagia [Unknown]
  - Arteriovenous fistula operation [Unknown]
  - Dyspnoea [Unknown]
  - Renal failure [Unknown]
  - Blood creatine increased [Unknown]
  - Injection site haemorrhage [Recovered/Resolved]
  - Injection site bruising [Unknown]
  - Inappropriate schedule of drug administration [Unknown]
  - Nausea [Unknown]
  - Pruritus [Unknown]
